FAERS Safety Report 11339720 (Version 1)
Quarter: 2015Q3

REPORT INFORMATION
  Report Type: Spontaneous
  Country: US (occurrence: None)
  Receive Date: 20150804
  Receipt Date: 20150804
  Transmission Date: 20151125
  Serious: Yes (Life-Threatening, Other)
  Sender: FDA-Public Use
  Company Number: None

PATIENT
  Age: 63 Year
  Sex: Male
  Weight: 65.77 kg

DRUGS (6)
  1. OXYCODONE [Suspect]
     Active Substance: OXYCODONE
     Indication: PAIN
     Dosage: 1-15 MG FOUR TIMES DAILY TAKEN BY MOUTH
     Route: 048
  2. VITAMIN B12 [Concomitant]
     Active Substance: CYANOCOBALAMIN
  3. MILK THISTLE [Concomitant]
     Active Substance: MILK THISTLE
  4. MULTIVITAMIN [Concomitant]
     Active Substance: VITAMINS
  5. B-6 [Concomitant]
  6. C VITAMIN [Concomitant]

REACTIONS (5)
  - Product substitution issue [None]
  - Anxiety [None]
  - Confusional state [None]
  - Suicidal ideation [None]
  - Depression [None]

NARRATIVE: CASE EVENT DATE: 20150802
